FAERS Safety Report 13157431 (Version 2)
Quarter: 2017Q1

REPORT INFORMATION
  Report Type: Spontaneous
  Country: US (occurrence: US)
  Receive Date: 20170127
  Receipt Date: 20170321
  Transmission Date: 20170428
  Serious: Yes (Hospitalization)
  Sender: FDA-Public Use
  Company Number: US-HORIZON-ACT-0018-2017

PATIENT
  Age: 72 Year
  Sex: Female

DRUGS (3)
  1. VORICONAZOLE. [Concomitant]
     Active Substance: VORICONAZOLE
  2. SUPRAX [Concomitant]
     Active Substance: CEFIXIME
  3. ACTIMMUNE [Suspect]
     Active Substance: INTERFERON GAMMA-1B
     Indication: CHRONIC GRANULOMATOUS DISEASE
     Dosage: 68 ?G TIW, PATIENT WAS INJECTING 0.34 ML TIW
     Dates: start: 20140924

REACTIONS (2)
  - Respiratory tract infection [Recovering/Resolving]
  - Burkholderia infection [Recovering/Resolving]
